FAERS Safety Report 5341845-3 (Version None)
Quarter: 2007Q2

REPORT INFORMATION
  Report Type: 
  Country: None (occurrence: None)
  Receive Date: 20070601
  Receipt Date: 20070525
  Transmission Date: 20071010
  Serious: Yes (Hospitalization)
  Sender: FDA-Public Use
  Company Number: JP-ELI_LILLY_AND_COMPANY-JP200705006819

PATIENT
  Age: 65 Year
  Sex: Female

DRUGS (6)
  1. HUMULIN 70/30 [Suspect]
     Indication: DIABETES MELLITUS NON-INSULIN-DEPENDENT
     Dosage: 58 IU, DAILY (1/D)
     Route: 042
     Dates: start: 20011201, end: 20020401
  2. HUMULIN 70/30 [Suspect]
     Dosage: 42 IU, DAILY (1/D)
     Route: 042
     Dates: start: 20020401, end: 20030401
  3. HUMULIN 70/30 [Suspect]
     Dosage: 38 IU, DAILY (1/D)
     Route: 042
     Dates: start: 20030401, end: 20030901
  4. GLIBENCLAMIDE [Concomitant]
     Indication: DIABETES MELLITUS NON-INSULIN-DEPENDENT
     Dosage: 5 MG, DAILY (1/D)
     Dates: start: 20000101
  5. VOGLIBOSE [Concomitant]
     Indication: DIABETES MELLITUS NON-INSULIN-DEPENDENT
     Dosage: 0.9 MG, DAILY (1/D)
     Dates: start: 20000101
  6. METFORMIN HYDROCHLORIDE [Concomitant]
     Indication: DIABETES MELLITUS NON-INSULIN-DEPENDENT
     Dosage: 750 MG, DAILY (1/D)
     Dates: start: 20000101

REACTIONS (4)
  - ANTI-GAD ANTIBODY POSITIVE [None]
  - ANTI-INSULIN ANTIBODY POSITIVE [None]
  - DIABETES MELLITUS INSULIN-DEPENDENT [None]
  - IMPAIRED INSULIN SECRETION [None]
